FAERS Safety Report 7226701-8 (Version None)
Quarter: 2011Q1

REPORT INFORMATION
  Report Type: 
  Country: None (occurrence: None)
  Receive Date: 20110105
  Receipt Date: 20101220
  Transmission Date: 20110831
  Serious: Yes (Death)
  Sender: FDA-Public Use
  Company Number: 2008001749

PATIENT
  Age: 78 Year
  Sex: Female

DRUGS (8)
  1. LISONOPRIL (LISINOPRIL) [Concomitant]
  2. DARVOCET [Concomitant]
  3. CITRUCEL POWDER (METHYLCELLULOSE) [Concomitant]
  4. ATENELOL (ATENOLOL) [Concomitant]
  5. HYDROCHLOROTHIAZIDE [Concomitant]
  6. ERLOTINIB (ERLOTINIB) (TABLET) (ERLOTINIB) [Suspect]
     Indication: NON-SMALL CELL LUNG CANCER
     Dosage: (150 MG, QD), ORAL
     Route: 048
     Dates: start: 20080522, end: 20080626
  7. XANAX [Concomitant]
  8. BEVACIZUMAB (INJECTION FOR INFUSION) [Suspect]
     Indication: NON-SMALL CELL LUNG CANCER
     Dosage: (743 MG, Q3W), INTRAVENOUS
     Route: 042
     Dates: start: 20080228, end: 20080612

REACTIONS (2)
  - RESPIRATORY FAILURE [None]
  - ASTHENIA [None]
